FAERS Safety Report 9467049 (Version 1)
Quarter: 2013Q3

REPORT INFORMATION
  Report Type: Spontaneous
  Country: DK (occurrence: DK)
  Receive Date: 20130820
  Receipt Date: 20130820
  Transmission Date: 20140515
  Serious: Yes (Hospitalization, Congenital Anomaly)
  Sender: FDA-Public Use
  Company Number: DK-GLAXOSMITHKLINE-B0915786A

PATIENT
  Age: 0 None
  Sex: Male
  Weight: 3.4 kg

DRUGS (5)
  1. ELTROXIN [Suspect]
     Indication: HYPOTHYROIDIC GOITRE
     Dosage: 50UG PER DAY
     Route: 064
     Dates: start: 200610
  2. LAMICTAL [Suspect]
     Indication: DEPRESSION
     Route: 064
     Dates: start: 200407
  3. NORITREN [Suspect]
     Indication: DEPRESSION
     Dosage: 50MG THREE TIMES PER DAY
     Route: 048
     Dates: start: 20040701
  4. SEROQUEL [Suspect]
     Indication: DEPRESSION
     Dosage: 50MG PER DAY
     Route: 064
     Dates: start: 20130101, end: 20130502
  5. LINDYNETTE [Suspect]
     Indication: CONTRACEPTION
     Route: 064
     Dates: end: 20130430

REACTIONS (5)
  - Epispadias [Not Recovered/Not Resolved]
  - Ear malformation [Not Recovered/Not Resolved]
  - Hemivertebra [Not Recovered/Not Resolved]
  - Foetal exposure during pregnancy [Unknown]
  - Hypotonia [Recovering/Resolving]
